FAERS Safety Report 23331735 (Version 1)
Quarter: 2023Q4

REPORT INFORMATION
  Report Type: Spontaneous
  Country: US (occurrence: None)
  Receive Date: 20231216
  Receipt Date: 20231216
  Transmission Date: 20240109
  Serious: Yes (Other)
  Sender: FDA-Public Use
  Company Number: None

PATIENT
  Age: 42 Year
  Sex: Female
  Weight: 112.5 kg

DRUGS (13)
  1. SEMAGLUTIDE [Suspect]
     Active Substance: SEMAGLUTIDE
     Indication: Weight decreased
     Dosage: 1 INJECTION ONCE PER WEEK SUBCUTANEOUS
     Route: 058
     Dates: start: 20231110, end: 20231215
  2. XYZAL [Concomitant]
  3. Unison [Concomitant]
  4. VITAMIN B COMPLEX [Concomitant]
     Active Substance: CYANOCOBALAMIN\DEXPANTHENOL\NIACINAMIDE\PYRIDOXINE HYDROCHLORIDE\RIBOFLAVIN 5^-PHOSPHATE SODIUM\THIA
  5. Vitamin D3 + K2 [Concomitant]
  6. MELATONIN [Concomitant]
     Active Substance: MELATONIN
  7. PEPCID AC [Concomitant]
     Active Substance: FAMOTIDINE
  8. Excedrin [Concomitant]
  9. PROZAC [Concomitant]
     Active Substance: FLUOXETINE HYDROCHLORIDE
  10. WELLBUTRIN [Concomitant]
  11. PROVIGIL [Concomitant]
     Active Substance: MODAFINIL
  12. AMLODIPINE [Concomitant]
  13. TOPAMAX [Concomitant]
     Active Substance: TOPIRAMATE

REACTIONS (4)
  - Nausea [None]
  - Vomiting [None]
  - Headache [None]
  - Fatigue [None]

NARRATIVE: CASE EVENT DATE: 20231215
